FAERS Safety Report 9532391 (Version 2)
Quarter: 2013Q4

REPORT INFORMATION
  Report Type: Spontaneous
  Country: US (occurrence: None)
  Receive Date: 20130916
  Receipt Date: 20131016
  Transmission Date: 20140711
  Serious: Yes (Other)
  Sender: FDA-Public Use
  Company Number: ACO_36976_2013

PATIENT
  Age: 56 Year
  Sex: Female
  Weight: 75.3 kg

DRUGS (28)
  1. AMPYRA [Suspect]
     Indication: MULTIPLE SCLEROSIS
     Route: 048
     Dates: start: 20130517, end: 2013
  2. AMPYRA [Suspect]
     Indication: GAIT DISTURBANCE
     Route: 048
     Dates: start: 20130517, end: 2013
  3. AVONEX [Suspect]
     Indication: PRODUCT USED FOR UNKNOWN INDICATION
     Dates: start: 20130705
  4. BACTRIM [Suspect]
     Indication: PRODUCT USED FOR UNKNOWN INDICATION
  5. NEURONTIN (GABAPENTIN) [Concomitant]
  6. TRAMADOL (TRAMADOL HYDROCHLORIDE) [Concomitant]
  7. INDERAL (PROPRANOLOL HYDROCHLORIDE) [Concomitant]
  8. ASPIRIN (ACETYLSALICYLIC ACID) [Concomitant]
  9. HYDROCHLOROTHIAZIDE (HYDROCHLOROTHIAZIDE) [Concomitant]
  10. FLOMAX (TAMSULOSIN HYDROCHLORIDE) [Concomitant]
  11. OXYBUTYNIN (OXYBUTYNIN) [Concomitant]
  12. POTASSIUM (POTASSIUM) [Concomitant]
  13. ACTIGALL (URSODEOXYCHOLIC ACID) [Concomitant]
  14. BACLOFEN (BACLOFEN) [Concomitant]
  15. FLEXERIL (CYCLOBENZAPRINE HYDROCHLORIDE) [Concomitant]
  16. CLONAZEPAM (CLONAZEPAM) (CLONAZEPAM) [Concomitant]
  17. CYMBALTA (DULOXETINE HYDROCHLORIDE) [Concomitant]
  18. LACTULOSE (LACTULOSE) [Concomitant]
  19. PROVIGIL (MODAFINIL) [Concomitant]
  20. OMEPRAZOLE (OMEPRAZOLE) [Concomitant]
  21. ZANTAC (RANITIDINE HYDROCHLORIDE) [Concomitant]
  22. FISH OIL (FISH OIL) [Concomitant]
  23. MULTIVITAMIN (VITAMINS NOS) [Concomitant]
  24. BEANO (ALPHA-D-GALACTOSIDASE) [Concomitant]
  25. BIOTIN (BIOTIN) [Concomitant]
  26. VITAMIN D (ERGOCALCIFEROL) [Concomitant]
  27. COLACE [Concomitant]
  28. TYSABRI (NATALIZUMAB) [Concomitant]

REACTIONS (32)
  - Amnesia [None]
  - Osteonecrosis [None]
  - Nerve injury [None]
  - Fractured sacrum [None]
  - Cyst [None]
  - Vitreous floaters [None]
  - Vision blurred [None]
  - Blood pressure increased [None]
  - Petechiae [None]
  - Joint stiffness [None]
  - Pain [None]
  - Musculoskeletal pain [None]
  - Oedema peripheral [None]
  - Feeling hot [None]
  - Fall [None]
  - Gait disturbance [None]
  - Adverse event [None]
  - Cognitive disorder [None]
  - Fatigue [None]
  - Motor dysfunction [None]
  - Hypoaesthesia [None]
  - Nerve compression [None]
  - Cystitis [None]
  - Eye pain [None]
  - Urine abnormality [None]
  - Rash [None]
  - Swelling face [None]
  - Tremor [None]
  - Chills [None]
  - Arthralgia [None]
  - Drug hypersensitivity [None]
  - Multiple sclerosis relapse [None]
